FAERS Safety Report 6671445-4 (Version None)
Quarter: 2010Q2

REPORT INFORMATION
  Report Type: 
  Country: None (occurrence: None)
  Receive Date: 20100407
  Receipt Date: 20100330
  Transmission Date: 20101027
  Serious: Yes (Other)
  Sender: FDA-Public Use
  Company Number: US-RB-017961-09

PATIENT
  Sex: Female

DRUGS (4)
  1. SUBUTEX [Suspect]
     Route: 060
     Dates: start: 20090701, end: 20100201
  2. SUBOXONE [Suspect]
     Route: 060
     Dates: start: 20080101, end: 20090701
  3. PHENOBARBITAL TAB [Concomitant]
     Indication: EPILEPSY
     Dosage: DOSING INFORMATION UNKNOWN
     Route: 065
  4. XANAX [Suspect]
     Indication: ANXIETY DISORDER
     Dosage: VARYING DOSES OF 7-20 MG
     Route: 065

REACTIONS (3)
  - CONVULSION [None]
  - DRUG ABUSE [None]
  - DRUG EXPOSURE DURING PREGNANCY [None]
